FAERS Safety Report 7644893-3 (Version None)
Quarter: 2011Q3

REPORT INFORMATION
  Report Type: 
  Country: None (occurrence: None)
  Receive Date: 20110729
  Receipt Date: 20110719
  Transmission Date: 20111222
  Serious: Yes (Hospitalization, Other)
  Sender: FDA-Public Use
  Company Number: US-ROCHE-754392

PATIENT
  Sex: Male
  Weight: 68 kg

DRUGS (1)
  1. ACCUTANE [Suspect]
     Indication: ACNE
     Route: 048
     Dates: start: 19991130, end: 20010101

REACTIONS (13)
  - GASTROINTESTINAL INJURY [None]
  - INFLAMMATORY BOWEL DISEASE [None]
  - BLOOD CHOLESTEROL INCREASED [None]
  - CROHN'S DISEASE [None]
  - DRY SKIN [None]
  - COLITIS ULCERATIVE [None]
  - EPISTAXIS [None]
  - ACNE [None]
  - CLOSTRIDIUM DIFFICILE COLITIS [None]
  - FOLLICULITIS [None]
  - RASH [None]
  - INTESTINAL OBSTRUCTION [None]
  - LIP DRY [None]
